APPROVED DRUG PRODUCT: PEDIAMYCIN
Active Ingredient: ERYTHROMYCIN ETHYLSUCCINATE
Strength: EQ 200MG BASE/5ML
Dosage Form/Route: SUSPENSION;ORAL
Application: A062304 | Product #001
Applicant: ARBOR PHARMACEUTICALS LLC
Approved: Approved Prior to Jan 1, 1982 | RLD: No | RS: No | Type: DISCN